FAERS Safety Report 8382273-6 (Version None)
Quarter: 2012Q2

REPORT INFORMATION
  Report Type: 
  Country: None (occurrence: None)
  Receive Date: 20120524
  Receipt Date: 20120517
  Transmission Date: 20120825
  Serious: No
  Sender: FDA-Public Use
  Company Number: US-PFIZER INC-2012065018

PATIENT
  Sex: Female
  Weight: 78.005 kg

DRUGS (4)
  1. IBUPROFEN (ADVIL) [Suspect]
     Indication: HEADACHE
  2. SYNTHROID [Concomitant]
     Indication: HYPOTHYROIDISM
     Dosage: 112 UG, DAILY
  3. IBUPROFEN (ADVIL) [Suspect]
     Indication: ARTHRITIS
     Dosage: 200MG DAILY FOR ARTHRITIS AND 400MG AS NEEDED FOR HEADACHE
     Route: 048
     Dates: end: 20120301
  4. HYDROCHLOROTHIAZIDE [Concomitant]
     Indication: HYPERTENSION
     Dosage: 12.5 MG, DAILY

REACTIONS (2)
  - POOR QUALITY DRUG ADMINISTERED [None]
  - SKIN ODOUR ABNORMAL [None]
